FAERS Safety Report 16805265 (Version 3)
Quarter: 2021Q1

REPORT INFORMATION
  Report Type: Spontaneous
  Country: US (occurrence: US)
  Receive Date: 20190913
  Receipt Date: 20210315
  Transmission Date: 20210419
  Serious: Yes (Other)
  Sender: FDA-Public Use
  Company Number: US-PFIZER INC-2019395699

PATIENT
  Age: 59 Year
  Sex: Female

DRUGS (1)
  1. LYRICA [Suspect]
     Active Substance: PREGABALIN
     Dosage: UNK

REACTIONS (6)
  - Bradyphrenia [Unknown]
  - Dysgraphia [Unknown]
  - Cerebrovascular accident [Unknown]
  - Feeling abnormal [Unknown]
  - Lung neoplasm malignant [Unknown]
  - Pyrexia [Unknown]
